FAERS Safety Report 10218401 (Version 1)
Quarter: 2014Q2

REPORT INFORMATION
  Report Type: Spontaneous
  Country: LK (occurrence: LK)
  Receive Date: 20140605
  Receipt Date: 20140605
  Transmission Date: 20141212
  Serious: Yes (Other)
  Sender: FDA-Public Use
  Company Number: LK-ROXANE LABORATORIES, INC.-2014-RO-00819RO

PATIENT
  Age: 75 Year
  Sex: Female

DRUGS (5)
  1. RISPERIDONE [Suspect]
     Indication: BIPOLAR DISORDER
     Dosage: 8 MG
     Route: 065
  2. RISPERIDONE [Suspect]
     Dosage: 4 MG
     Route: 065
  3. LORAZEPAM [Suspect]
     Indication: AGITATION
     Route: 048
  4. LORAZEPAM [Suspect]
     Indication: POOR QUALITY SLEEP
  5. SODIUM VALPROATE [Suspect]
     Indication: BIPOLAR DISORDER
     Dosage: 800 MG
     Route: 065

REACTIONS (5)
  - Hypothermia [Recovered/Resolved]
  - Dysarthria [Recovered/Resolved]
  - Somnolence [Recovered/Resolved]
  - Dehydration [Recovered/Resolved]
  - Lower respiratory tract infection [Recovered/Resolved]
